FAERS Safety Report 26137850 (Version 1)
Quarter: 2025Q4

REPORT INFORMATION
  Report Type: Report from Study
  Country: EU (occurrence: EU)
  Receive Date: 20251210
  Receipt Date: 20251210
  Transmission Date: 20260117
  Serious: Yes (Death, Hospitalization)
  Sender: ABBVIE
  Company Number: EU-ABBVIE-6561607

PATIENT
  Age: 71 Year
  Sex: Male

DRUGS (1)
  1. FOSCARBIDOPA\FOSLEVODOPA [Suspect]
     Active Substance: FOSCARBIDOPA\FOSLEVODOPA
     Indication: Parkinson^s disease
     Dosage: LD: 1.0ML ?CR: LOW: 0.44ML/H ?BASE: 0.51ML/H ?HIGH: 0.53ML/H ?ED: 0.15ML
     Route: 058
     Dates: start: 20250829

REACTIONS (2)
  - Cardiac arrest [Fatal]
  - Dyspnoea [Not Recovered/Not Resolved]

NARRATIVE: CASE EVENT DATE: 20251120
